FAERS Safety Report 18602578 (Version 4)
Quarter: 2021Q1

REPORT INFORMATION
  Report Type: Spontaneous
  Country: US (occurrence: US)
  Receive Date: 20201210
  Receipt Date: 20210208
  Transmission Date: 20210419
  Serious: Yes (Death, Hospitalization)
  Sender: FDA-Public Use
  Company Number: US-TEVA-2020-US-1858333

PATIENT
  Age: 40 Year
  Sex: Male

DRUGS (1)
  1. TREPROSTINIL MDV TEVA [Suspect]
     Active Substance: TREPROSTINIL
     Indication: PULMONARY HYPERTENSION
     Dosage: 54 NG/KG/MIN
     Route: 042
     Dates: start: 20200117

REACTIONS (8)
  - Critical illness [Fatal]
  - Syncope [Unknown]
  - Pulmonary arterial hypertension [Unknown]
  - Dyspnoea [Unknown]
  - Hypotension [Unknown]
  - General physical health deterioration [Unknown]
  - Pulmonary hypertension [Fatal]
  - Cardiac failure [Unknown]

NARRATIVE: CASE EVENT DATE: 202011
